FAERS Safety Report 6708315-9 (Version None)
Quarter: 2010Q2

REPORT INFORMATION
  Report Type: 
  Country: None (occurrence: None)
  Receive Date: 20100428
  Receipt Date: 20100415
  Transmission Date: 20101027
  Serious: Yes (Other)
  Sender: FDA-Public Use
  Company Number: 1-22275526

PATIENT
  Sex: Male

DRUGS (2)
  1. METOCLOPRAMIDE [Suspect]
     Dosage: ORAL
     Route: 048
  2. METOCLOPRAMIDE HYDROCHLORIDE [Suspect]
     Dosage: ORAL
     Route: 048

REACTIONS (10)
  - ANHEDONIA [None]
  - ANXIETY [None]
  - DEFORMITY [None]
  - DYSKINESIA [None]
  - EMOTIONAL DISTRESS [None]
  - EXTRAPYRAMIDAL DISORDER [None]
  - MULTIPLE INJURIES [None]
  - NERVOUS SYSTEM DISORDER [None]
  - PAIN [None]
  - TARDIVE DYSKINESIA [None]
